FAERS Safety Report 10353770 (Version 1)
Quarter: 2014Q3

REPORT INFORMATION
  Report Type: Spontaneous
  Country: US (occurrence: None)
  Receive Date: 20140729
  Receipt Date: 20140729
  Transmission Date: 20150326
  Serious: Yes (Life-Threatening, Hospitalization)
  Sender: FDA-Public Use
  Company Number: None

PATIENT
  Age: 75 Year
  Sex: Male
  Weight: 85.5 kg

DRUGS (2)
  1. HEPARIN [Suspect]
     Active Substance: HEPARIN SODIUM
     Indication: THROMBOSIS
     Dosage: 25,000UNITS/500ML
     Dates: start: 20140624, end: 20140629
  2. HEPARIN [Suspect]
     Active Substance: HEPARIN SODIUM
     Indication: EMBOLISM
     Dosage: 25,000UNITS/500ML
     Dates: start: 20140624, end: 20140629

REACTIONS (2)
  - Heparin-induced thrombocytopenia [None]
  - Immunology test abnormal [None]

NARRATIVE: CASE EVENT DATE: 20140629
